FAERS Safety Report 7018180-0 (Version None)
Quarter: 2010Q3

REPORT INFORMATION
  Report Type: 
  Country: None (occurrence: None)
  Receive Date: 20100928
  Receipt Date: 20100920
  Transmission Date: 20110219
  Serious: Yes (Other)
  Sender: FDA-Public Use
  Company Number: HR-ROCHE-729180

PATIENT

DRUGS (1)
  1. DIAZEPAM [Suspect]
     Indication: ANXIOLYTIC THERAPY
     Route: 064

REACTIONS (1)
  - CONGENITAL CARDIOVASCULAR ANOMALY [None]
